FAERS Safety Report 17802905 (Version 1)
Quarter: 2020Q2

REPORT INFORMATION
  Report Type: Spontaneous
  Country: US (occurrence: US)
  Receive Date: 20200519
  Receipt Date: 20200519
  Transmission Date: 20200714
  Serious: Yes (Death)
  Sender: FDA-Public Use
  Company Number: US-PFIZER INC-2018139980

PATIENT
  Age: 76 Year
  Sex: Male

DRUGS (3)
  1. RAPAMUNE [Suspect]
     Active Substance: SIROLIMUS
     Dosage: 5 MG, DAILY (1 MG TABLET TAKE 5 TABLETS (5MG TOTAL) BY MOUTH DAILY)
     Route: 048
  2. RAPAMUNE [Suspect]
     Active Substance: SIROLIMUS
     Indication: LUNG TRANSPLANT
     Dosage: 0.5 MG, DAILY, [TAKE 7 TABS (3.5 MG)]
  3. RAPAMUNE [Suspect]
     Active Substance: SIROLIMUS
     Dosage: 4.5 MG, DAILY (0.5MG 9 TABLETS PER DAY)

REACTIONS (3)
  - Off label use [Unknown]
  - Death [Fatal]
  - Product use in unapproved indication [Unknown]

NARRATIVE: CASE EVENT DATE: 202005
